FAERS Safety Report 4386996-5 (Version None)
Quarter: 2004Q2

REPORT INFORMATION
  Report Type: 
  Country: None (occurrence: None)
  Receive Date: 20040625
  Receipt Date: 20040610
  Transmission Date: 20050107
  Serious: Yes (Hospitalization)
  Sender: FDA-Public Use
  Company Number: 205902

PATIENT
  Age: 61 Year
  Sex: Female
  Weight: 70 kg

DRUGS (17)
  1. HERCEPTIN [Suspect]
     Indication: BREAST CANCER
     Dosage: SEE IMAGE
     Route: 042
     Dates: start: 20040316, end: 20040316
  2. HERCEPTIN [Suspect]
     Indication: BREAST CANCER
     Dosage: SEE IMAGE
     Route: 042
     Dates: start: 20040322, end: 20040322
  3. NAVELBINE [Suspect]
     Dosage: SEE IMAGE
     Route: 042
     Dates: start: 20040315, end: 20040315
  4. NAVELBINE [Suspect]
     Dosage: SEE IMAGE
     Route: 042
     Dates: start: 20040322, end: 20040322
  5. PRAVASTATIN SODIUM [Concomitant]
  6. ZYRTEC [Concomitant]
  7. DEXCHLORPHENIRAMINE MALEATE [Concomitant]
  8. HYALURONATE SODIUM (SODIUM HYALURONATE) [Concomitant]
  9. LIVOSTIN [Concomitant]
  10. EBASTEL (EBASTINE) [Concomitant]
  11. HIRUDOID (HEPARINOIDS) [Concomitant]
  12. VOLTAREN [Concomitant]
  13. ALOSENN [Concomitant]
  14. RINDERON (BETAMETHASONE, BETAMETHASONE ACETATE, BETAMETHASONE SODIUM P [Concomitant]
  15. LOXONIN (LOXOPROFEN SODIUM) [Concomitant]
  16. ATARAX [Concomitant]
  17. MAGNESIUM OXIDE (MAGNESIUM OXIDE) [Concomitant]

REACTIONS (9)
  - ANXIETY [None]
  - EMOTIONAL DISTRESS [None]
  - FEAR OF DISEASE [None]
  - INFUSION RELATED REACTION [None]
  - MANIA [None]
  - MENTAL DISORDER [None]
  - PERSECUTORY DELUSION [None]
  - SPEECH DISORDER [None]
  - TREATMENT NONCOMPLIANCE [None]
